FAERS Safety Report 6441679-2 (Version None)
Quarter: 2009Q4

REPORT INFORMATION
  Report Type: 
  Country: None (occurrence: None)
  Receive Date: 20091116
  Receipt Date: 20091016
  Transmission Date: 20100525
  Serious: No
  Sender: FDA-Public Use
  Company Number: US-BAYER-200915794BCC

PATIENT
  Age: 68 Year
  Sex: Female
  Weight: 51 kg

DRUGS (2)
  1. ALEVE (CAPLET) [Suspect]
     Indication: FACIAL PAIN
     Dosage: TOTAL DAILY DOSE: 880 MG  UNIT DOSE: 220 MG
     Route: 048
     Dates: start: 20090711, end: 20090801
  2. HORMONE [Concomitant]
     Route: 065

REACTIONS (2)
  - DIARRHOEA [None]
  - RASH PRURITIC [None]
